FAERS Safety Report 7057293-4 (Version None)
Quarter: 2010Q4

REPORT INFORMATION
  Report Type: 
  Country: None (occurrence: None)
  Receive Date: 20101022
  Receipt Date: 20101013
  Transmission Date: 20110411
  Serious: Yes (Other)
  Sender: FDA-Public Use
  Company Number: US-AMGEN INC.-QUU437451

PATIENT

DRUGS (15)
  1. NPLATE [Suspect]
     Indication: IDIOPATHIC THROMBOCYTOPENIC PURPURA
     Dosage: 340 A?G, UNK
     Dates: start: 20100519, end: 20100804
  2. NPLATE [Suspect]
     Dosage: 340 A?G, UNK
     Dates: start: 20100519, end: 20100804
  3. NPLATE [Suspect]
     Dosage: 340 A?G, UNK
     Dates: start: 20100519, end: 20100804
  4. NPLATE [Suspect]
     Dosage: 340 A?G, UNK
     Dates: start: 20100519, end: 20100804
  5. NPLATE [Suspect]
     Dosage: 340 A?G, UNK
     Dates: start: 20100519, end: 20100804
  6. NPLATE [Suspect]
     Dosage: 340 A?G, UNK
     Dates: start: 20100519, end: 20100804
  7. NPLATE [Suspect]
     Dosage: 340 A?G, UNK
     Dates: start: 20100519, end: 20100804
  8. SERTRALINE HYDROCHLORIDE [Concomitant]
  9. LISINOPRIL [Concomitant]
  10. OMEPRAZOLE [Concomitant]
  11. MEGESTROL ACETATE [Concomitant]
  12. HYDROCHLOROTHIAZIDE [Concomitant]
  13. POTASSIUM CHLORIDE [Concomitant]
  14. RIVASTIGIMINE [Concomitant]
  15. SILODOSIN [Concomitant]

REACTIONS (2)
  - DEEP VEIN THROMBOSIS [None]
  - THROMBOCYTOPENIA [None]
